FAERS Safety Report 11778771 (Version 2)
Quarter: 2015Q4

REPORT INFORMATION
  Report Type: Other
  Country: ES (occurrence: ES)
  Receive Date: 20151125
  Receipt Date: 20151125
  Transmission Date: 20160304
  Serious: Yes (Other)
  Sender: FDA-Public Use
  Company Number: ES-NSR_02273_2015

PATIENT
  Age: 78 Year
  Sex: Male

DRUGS (15)
  1. DOXAZOSIN [Concomitant]
     Active Substance: DOXAZOSIN\DOXAZOSIN MESYLATE
     Indication: HYPERTENSION
     Dosage: 4 MG, ONCE EVERY 3 DAYS
     Dates: start: 2014
  2. DOXAZOSIN [Concomitant]
     Active Substance: DOXAZOSIN\DOXAZOSIN MESYLATE
     Dosage: 2 MG, EVERY 2 DAYS
     Dates: start: 2014, end: 2014
  3. CITOCOLINE [Concomitant]
     Indication: PRODUCT USED FOR UNKNOWN INDICATION
     Dosage: 100 MG/ML, EACH MORNING
  4. ROSUVASTA [Concomitant]
     Indication: HYPERCHOLESTEROLAEMIA
  5. EPLERENONE. [Concomitant]
     Active Substance: EPLERENONE
     Indication: HYPERTENSION
  6. ACETYLCYSTEINE. [Concomitant]
     Active Substance: ACETYLCYSTEINE
     Indication: ASTHMA
  7. ATENOLOL. [Suspect]
     Active Substance: ATENOLOL
     Indication: HYPERTENSION
  8. LORAZEPAM. [Concomitant]
     Active Substance: LORAZEPAM
     Indication: INSOMNIA
  9. RAMIPRIL. [Concomitant]
     Active Substance: RAMIPRIL
     Indication: HYPERTENSION
  10. TRIMETAZIDINE [Concomitant]
     Active Substance: TRIMETAZIDINE
     Indication: ISCHAEMIC CARDIOMYOPATHY
  11. ACETYLSALICYLIC ACID [Concomitant]
     Active Substance: ASPIRIN
     Indication: ISCHAEMIC CARDIOMYOPATHY
  12. ANTIBIOTICS [Concomitant]
     Active Substance: UNSPECIFIED INGREDIENT
     Indication: RESPIRATORY TRACT INFECTION
     Dosage: DF
  13. FORMOTEROL [Suspect]
     Active Substance: FORMOTEROL
     Indication: ASTHMA
     Dosage: 6/100MCG/DOSE
     Route: 055
     Dates: start: 2014, end: 2014
  14. PANTOPRAZOLE [Concomitant]
     Active Substance: PANTOPRAZOLE SODIUM
     Indication: GASTROOESOPHAGEAL REFLUX PROPHYLAXIS
  15. MOMETASONE FUROATE TWISTHALER [Concomitant]
     Indication: ASTHMA
     Dosage: 400 MCG, FREQUENCY UNKNOWN
     Route: 055
     Dates: start: 2014, end: 2014

REACTIONS (5)
  - Bronchospasm [Recovered/Resolved]
  - Activities of daily living impaired [Recovered/Resolved]
  - Asthma [Recovered/Resolved]
  - Drug interaction [Recovered/Resolved]
  - Suffocation feeling [Recovered/Resolved]

NARRATIVE: CASE EVENT DATE: 2014
